FAERS Safety Report 24334842 (Version 1)
Quarter: 2024Q3

REPORT INFORMATION
  Report Type: Spontaneous
  Country: US (occurrence: US)
  Receive Date: 20240918
  Receipt Date: 20240918
  Transmission Date: 20241016
  Serious: Yes (Hospitalization)
  Sender: BRISTOL MYERS SQUIBB
  Company Number: US-BRISTOL-MYERS SQUIBB COMPANY-2024-148149

PATIENT
  Age: 63 Year
  Sex: Male

DRUGS (2)
  1. POMALYST [Suspect]
     Active Substance: POMALIDOMIDE
     Indication: Prostate cancer
     Route: 048
  2. FINASTERIDE [Concomitant]
     Active Substance: FINASTERIDE
     Indication: Product used for unknown indication

REACTIONS (2)
  - Hospitalisation [Unknown]
  - Off label use [Unknown]

NARRATIVE: CASE EVENT DATE: 20240101
